FAERS Safety Report 5605633-2 (Version None)
Quarter: 2008Q1

REPORT INFORMATION
  Report Type: 
  Country: None (occurrence: None)
  Receive Date: 20080129
  Receipt Date: 20080122
  Transmission Date: 20080703
  Serious: Yes (Other)
  Sender: FDA-Public Use
  Company Number: BR-JNJFOC-20080105435

PATIENT
  Age: 27 Year
  Sex: Female

DRUGS (2)
  1. HALDOL [Suspect]
     Indication: SUICIDE ATTEMPT
  2. METHYLDOPA [Suspect]
     Indication: SUICIDE ATTEMPT

REACTIONS (2)
  - SOMNOLENCE [None]
  - SUICIDE ATTEMPT [None]
